FAERS Safety Report 10129103 (Version 1)
Quarter: 2014Q2

REPORT INFORMATION
  Report Type: Spontaneous
  Country: US (occurrence: None)
  Receive Date: 20140425
  Receipt Date: 20140425
  Transmission Date: 20141212
  Serious: Yes (Life-Threatening)
  Sender: FDA-Public Use
  Company Number: None

PATIENT
  Age: 17 Year
  Sex: Female
  Weight: 82.56 kg

DRUGS (1)
  1. NEXPLANON [Suspect]
     Indication: CONTRACEPTION
     Dates: start: 20140211, end: 20140408

REACTIONS (4)
  - Deep vein thrombosis [None]
  - Ligament operation [None]
  - Oedema peripheral [None]
  - Erythema [None]
